FAERS Safety Report 18103144 (Version 1)
Quarter: 2020Q3

REPORT INFORMATION
  Report Type: Spontaneous
  Country: US (occurrence: US)
  Receive Date: 20200801
  Receipt Date: 20200801
  Transmission Date: 20201103
  Serious: No
  Sender: FDA-Public Use
  Company Number: None

PATIENT
  Age: 57 Year
  Sex: Female
  Weight: 109.2 kg

DRUGS (22)
  1. LOVENOX 40MG SYRINGE [Concomitant]
     Dates: start: 20200626, end: 20200629
  2. EPOPROSTENOL 1.5MG IN 60ML NS INH SOLUTION [Concomitant]
     Dates: start: 20200627, end: 20200701
  3. OXYCODONE IR 5MG TAB [Concomitant]
     Dates: start: 20200629, end: 20200701
  4. MICONAZOLE 2% WITH ZINC OXIDE CREAM [Concomitant]
     Dates: start: 20200629, end: 20200701
  5. LEVOPHED IN D5W [Concomitant]
     Dates: start: 20200629, end: 20200701
  6. DEXMEDOTOMIDINE 500MCG IN 100ML NS [Concomitant]
     Dates: start: 20200629, end: 20200701
  7. DEXAMETHASONE 10MG IN 50ML NS [Concomitant]
     Dates: start: 20200629, end: 20200630
  8. FUROSEMIDE 20MG INJ [Concomitant]
     Dates: start: 20200626, end: 20200626
  9. LORAZEPAM 2MG TAB [Concomitant]
     Dates: start: 20200629, end: 20200701
  10. MIDODRINE 10MG TAB [Concomitant]
     Dates: start: 20200630, end: 20200701
  11. ROCURONIUM 100MG [Concomitant]
     Dates: start: 20200629, end: 20200701
  12. REMDESIVIR. [Suspect]
     Active Substance: REMDESIVIR
     Indication: COVID-19
     Route: 041
  13. AZITHROMYCIN 500MG IN NS 250ML [Concomitant]
     Dates: start: 20200626, end: 20200630
  14. KETAMINE 1000MG IN 100ML NS [Concomitant]
     Dates: start: 20200629, end: 20200701
  15. MIDAZOLAM 2MG INJ [Concomitant]
     Active Substance: MIDAZOLAM HYDROCHLORIDE
     Dates: start: 20200629, end: 20200701
  16. ACETAMINOPHEN 650MG TAB [Concomitant]
     Dates: start: 20200626, end: 20200629
  17. ASPIRIN 81MG CHEW TAB [Concomitant]
     Dates: start: 20200626, end: 20200701
  18. MELATONIN 3MG TAB [Concomitant]
     Dates: start: 20200628, end: 20200629
  19. LOVENOX 100MG SYRINGE [Concomitant]
     Dates: start: 20200629, end: 20200701
  20. ALBUTEROL?IPRATROPIUM 2.5?0.5MG/3ML NEBULIZER SOLN [Concomitant]
     Dates: start: 20200626, end: 20200701
  21. FAMOTIDINE 20MG INJ [Concomitant]
     Dates: start: 20200626, end: 20200701
  22. SOLU?MEDROL [Concomitant]
     Active Substance: METHYLPREDNISOLONE SODIUM SUCCINATE
     Dates: start: 20200626, end: 20200629

REACTIONS (2)
  - Disease complication [None]
  - Aspartate aminotransferase increased [None]

NARRATIVE: CASE EVENT DATE: 20200629
